FAERS Safety Report 5971787-1 (Version None)
Quarter: 2008Q4

REPORT INFORMATION
  Report Type: 
  Country: None (occurrence: None)
  Receive Date: 20081125
  Receipt Date: 20081112
  Transmission Date: 20090506
  Serious: Yes (Other)
  Sender: FDA-Public Use
  Company Number: 231727K08USA

PATIENT
  Age: 61 Year
  Sex: Female
  Weight: 77 kg

DRUGS (5)
  1. REBIF [Suspect]
     Indication: MULTIPLE SCLEROSIS
     Dates: end: 20020201
  2. LEXAPRO [Concomitant]
  3. RESTORIL [Concomitant]
  4. XANAX [Concomitant]
  5. ZOCOR (ZOCOR CARDIO ASS) [Concomitant]

REACTIONS (1)
  - THYROID CANCER [None]
